FAERS Safety Report 9361573 (Version 3)
Quarter: 2013Q3

REPORT INFORMATION
  Report Type: Report from Study
  Country: BR (occurrence: BR)
  Receive Date: 20130621
  Receipt Date: 20130822
  Transmission Date: 20140515
  Serious: Yes (Other)
  Sender: FDA-Public Use
  Company Number: PHHY2013BR042827

PATIENT
  Sex: Male
  Weight: 83 kg

DRUGS (5)
  1. APRESOLIN [Suspect]
     Indication: HYPERTENSION
     Dosage: 1 DF (25MG), TID
     Route: 048
     Dates: start: 2004
  2. APRESOLIN [Suspect]
     Dosage: 1 DF (25MG), TID
     Route: 048
  3. HYDROCHLOROTHIAZIDE [Concomitant]
     Indication: HYPERTENSION
     Dosage: 1 DF, DAILY
     Route: 048
     Dates: start: 2004
  4. ATENOLOL [Concomitant]
     Indication: HYPERTENSION
     Dosage: 1 DF, DAILY
     Route: 048
     Dates: start: 2004
  5. CAPTOPRIL [Concomitant]
     Indication: HYPERTENSION
     Dosage: 1 DF, DAILY
     Dates: start: 2004

REACTIONS (1)
  - Blood pressure increased [Recovering/Resolving]
